FAERS Safety Report 6607150-X (Version None)
Quarter: 2010Q1

REPORT INFORMATION
  Report Type: 
  Country: None (occurrence: None)
  Receive Date: 20100212
  Receipt Date: 20091019
  Transmission Date: 20100710
  Serious: No
  Sender: FDA-Public Use
  Company Number: 1000009559

PATIENT
  Sex: Female

DRUGS (5)
  1. SAVELLA [Suspect]
     Indication: FIBROMYALGIA
     Dosage: 12.5; 25; 50; 100; 200 (12.5 MG, 1 IN 1 D); (12.5; 25; 50; 100 MG, 2 IN 1 D), MG ORAL
     Route: 048
     Dates: start: 20090920, end: 20090901
  2. SAVELLA [Suspect]
     Indication: FIBROMYALGIA
     Dosage: 12.5; 25; 50; 100; 200 (12.5 MG, 1 IN 1 D); (12.5; 25; 50; 100 MG, 2 IN 1 D), MG ORAL
     Route: 048
     Dates: start: 20090914, end: 20090914
  3. SAVELLA [Suspect]
     Indication: FIBROMYALGIA
     Dosage: 12.5; 25; 50; 100; 200 (12.5 MG, 1 IN 1 D); (12.5; 25; 50; 100 MG, 2 IN 1 D), MG ORAL
     Route: 048
     Dates: start: 20090915, end: 20090916
  4. SAVELLA [Suspect]
     Indication: FIBROMYALGIA
     Dosage: 12.5; 25; 50; 100; 200 (12.5 MG, 1 IN 1 D); (12.5; 25; 50; 100 MG, 2 IN 1 D), MG ORAL
     Route: 048
     Dates: start: 20090917, end: 20090920
  5. SAVELLA [Suspect]
     Indication: FIBROMYALGIA
     Dosage: 12.5; 25; 50; 100; 200 (12.5 MG, 1 IN 1 D); (12.5; 25; 50; 100 MG, 2 IN 1 D), MG ORAL
     Route: 048
     Dates: start: 20090901

REACTIONS (2)
  - DEPRESSION [None]
  - DYSPEPSIA [None]
